FAERS Safety Report 8833906 (Version 2)
Quarter: 2014Q1

REPORT INFORMATION
  Report Type: Spontaneous
  Country: ES (occurrence: ES)
  Receive Date: 20121010
  Receipt Date: 20140321
  Transmission Date: 20141002
  Serious: Yes (Other)
  Sender: FDA-Public Use
  Company Number: PHHY2012ES086820

PATIENT
  Age: 44 Year
  Sex: Female

DRUGS (1)
  1. DIAZEPAM [Suspect]
     Dosage: 4-5 DF, UNK

REACTIONS (4)
  - Sexual abuse [Unknown]
  - Gait disturbance [Unknown]
  - Amnesia [Unknown]
  - Diplopia [Unknown]
